FAERS Safety Report 24792918 (Version 1)
Quarter: 2024Q4

REPORT INFORMATION
  Report Type: Report from Study
  Country: AU (occurrence: AU)
  Receive Date: 20241231
  Receipt Date: 20241231
  Transmission Date: 20250115
  Serious: Yes (Other)
  Sender: ROCHE
  Company Number: AU-002147023-NVSC2024AU241189

PATIENT
  Sex: Female

DRUGS (3)
  1. OMALIZUMAB [Suspect]
     Active Substance: OMALIZUMAB
     Indication: Anaphylactic reaction
     Dosage: 300 MG (150 MGX2), QMO, STRENGTH 150 MG,
     Route: 065
  2. OMALIZUMAB [Suspect]
     Active Substance: OMALIZUMAB
     Indication: Food allergy
     Dosage: 300 MG (150 MGX2), STRENGTH 150 MG, EVERY 3 WEEKS
     Route: 065
  3. EPIPEN [Concomitant]
     Active Substance: EPINEPHRINE
     Indication: Product used for unknown indication
     Dosage: SINCE 2021 THERE HAS BEEN ONE EPIPEN USED ONLY.
     Route: 065

REACTIONS (4)
  - Anaphylactic reaction [Unknown]
  - Viral infection [Unknown]
  - Food allergy [Unknown]
  - Condition aggravated [Unknown]
